FAERS Safety Report 23461193 (Version 1)
Quarter: 2024Q1

REPORT INFORMATION
  Report Type: Spontaneous
  Country: US (occurrence: None)
  Receive Date: 20240130
  Receipt Date: 20240130
  Transmission Date: 20240410
  Serious: Yes (Hospitalization)
  Sender: FDA-Public Use
  Company Number: None

PATIENT
  Age: 23 Year
  Sex: Male
  Weight: 67.5 kg

DRUGS (1)
  1. AUVELITY [Suspect]
     Active Substance: BUPROPION HYDROCHLORIDE\DEXTROMETHORPHAN HYDROBROMIDE
     Indication: Depression
     Dosage: TWICE A DAY ORAL
     Route: 048
     Dates: start: 20231212, end: 20240123

REACTIONS (3)
  - Mania [None]
  - Psychotic disorder [None]
  - Dissociative identity disorder [None]

NARRATIVE: CASE EVENT DATE: 20231231
